FAERS Safety Report 6639924-3 (Version None)
Quarter: 2010Q1

REPORT INFORMATION
  Report Type: 
  Country: None (occurrence: None)
  Receive Date: 20100315
  Receipt Date: 20100301
  Transmission Date: 20100710
  Serious: Yes (Other)
  Sender: FDA-Public Use
  Company Number: GR-1181013

PATIENT
  Age: 28 Year
  Sex: Female

DRUGS (2)
  1. TEARS NATURALE FREE                  (TEARS NATURALE) [Suspect]
     Dosage: OPHTHALMIC
     Route: 047
     Dates: start: 20100201, end: 20100201
  2. TEARS NATURALE FREE                  (TEARS NATURALE) [Suspect]
     Dosage: OPHTHALMIC
     Route: 047
     Dates: start: 20100201, end: 20100201

REACTIONS (3)
  - CHORIORETINOPATHY [None]
  - DRUG HYPERSENSITIVITY [None]
  - VISUAL IMPAIRMENT [None]
